FAERS Safety Report 5347127-8 (Version None)
Quarter: 2007Q2

REPORT INFORMATION
  Report Type: 
  Country: None (occurrence: None)
  Receive Date: 20070604
  Receipt Date: 20070425
  Transmission Date: 20071010
  Serious: Yes (Other)
  Sender: FDA-Public Use
  Company Number: 4761

PATIENT
  Age: 90 Year
  Sex: Female

DRUGS (1)
  1. CIPROFLAXACIN [Suspect]
     Indication: PROTEUS INFECTION
     Dosage: 1500,00 MG

REACTIONS (5)
  - BLOOD CREATININE INCREASED [None]
  - CRYSTAL URINE PRESENT [None]
  - INCORRECT DOSE ADMINISTERED [None]
  - NEPHROPATHY [None]
  - OLIGURIA [None]
